FAERS Safety Report 12701941 (Version 1)
Quarter: 2016Q3

REPORT INFORMATION
  Report Type: Spontaneous
  Country: US (occurrence: None)
  Receive Date: 20160830
  Receipt Date: 20160830
  Transmission Date: 20161109
  Serious: Yes (Other)
  Sender: FDA-Public Use
  Company Number: None

PATIENT
  Age: 87 Year
  Sex: Female
  Weight: 78.02 kg

DRUGS (1)
  1. LARYNG-O-JET [Suspect]
     Active Substance: LIDOCAINE HYDROCHLORIDE

REACTIONS (3)
  - Bloody discharge [None]
  - Device breakage [None]
  - Foreign body [None]

NARRATIVE: CASE EVENT DATE: 20160628
